FAERS Safety Report 5343360-X (Version None)
Quarter: 2007Q2

REPORT INFORMATION
  Report Type: 
  Country: None (occurrence: None)
  Receive Date: 20070501
  Receipt Date: 20070125
  Transmission Date: 20071010
  Serious: Yes (Hospitalization)
  Sender: FDA-Public Use
  Company Number: 200710566US

PATIENT
  Age: 68 Year
  Sex: Female

DRUGS (19)
  1. KETEK [Suspect]
     Indication: PNEUMONIA
     Dosage: 800 MG QD PO
     Route: 048
  2. ASPIRIN [Concomitant]
  3. ENBREL [Concomitant]
  4. METHOTREXATE [Concomitant]
  5. CELEBREX [Concomitant]
  6. BISOPROLOL FUMARATE (ZEBETA) [Concomitant]
  7. ZETIA [Concomitant]
  8. ESTROGENS CONJUGATED (PREMARIN /00073001/) [Concomitant]
  9. CYCLOBENZAPRINE HYDROCHLORIDE (FLEXERIL /00428402/) [Concomitant]
  10. DOCUSATE SODIUM (COLACE) [Concomitant]
  11. ERGOCALCIFEROL, ASCORBIC ACID, FOLIC ACID, THIAMINE HYDROCHLORIDE, RET [Concomitant]
  12. INDAPAMIDE (LOZOL) [Concomitant]
  13. POTASSIUM CHLORIDE [Concomitant]
  14. FOLIC ACID [Concomitant]
  15. FISH OIL (OMEGA 3) [Concomitant]
  16. ZINC [Concomitant]
  17. RABEPRAZOLE SODIUM (ACIPHEX) [Concomitant]
  18. TRIMETHOBENZAMIDE HYDROCHLORIDE (TIGAN) [Concomitant]
  19. ASPIRIN [Concomitant]

REACTIONS (5)
  - DRUG INEFFECTIVE [None]
  - DYSPNOEA [None]
  - PNEUMONIA [None]
  - RASH [None]
  - URTICARIA [None]
